FAERS Safety Report 24398983 (Version 1)
Quarter: 2024Q4

REPORT INFORMATION
  Report Type: Spontaneous
  Country: BR (occurrence: BR)
  Receive Date: 20241004
  Receipt Date: 20241004
  Transmission Date: 20250115
  Serious: Yes (Hospitalization, Other)
  Sender: BOEHRINGER INGELHEIM
  Company Number: BR-Komodo Health-a23aa000003PuGbAAK

PATIENT
  Age: 79 Year
  Sex: Female
  Weight: 65 kg

DRUGS (10)
  1. OLODATEROL HYDROCHLORIDE\TIOTROPIUM BROMIDE MONOHYDRATE [Suspect]
     Active Substance: OLODATEROL HYDROCHLORIDE\TIOTROPIUM BROMIDE MONOHYDRATE
     Indication: Emphysema
     Dosage: ONE PUFF IN THE MORNING AND ONE IN THE EVENING.
     Route: 055
  2. PANTOPRAZOLE SODIUM [Concomitant]
     Active Substance: PANTOPRAZOLE SODIUM
     Indication: Gastrointestinal disorder prophylaxis
     Dosage: ONE TABLET IN THE MORNING.
     Route: 048
     Dates: start: 202409
  3. Alenia [Concomitant]
     Indication: Chronic obstructive pulmonary disease
     Dosage: FORM STRENGTH:?12 MICROGRAMS/400MICROGRAMS. ?ONE PUFF IN THE MORNING, ONE IN THE AFTERNOON AND ONE A
  4. ROSUVASTATIN [Concomitant]
     Active Substance: ROSUVASTATIN
     Indication: Blood cholesterol increased
     Dosage: IN THE MORNING.
     Route: 048
  5. MALEATO DE ENALAPRIL [Concomitant]
     Indication: Cardiac disorder
     Dosage: IN THE MORNING.
     Route: 048
     Dates: start: 202409
  6. ASPIRIN\DIHYDROXYALUMINUM AMINOACETATE ANHYDROUS\MAGNESIUM CARBONATE [Concomitant]
     Active Substance: ASPIRIN\DIHYDROXYALUMINUM AMINOACETATE ANHYDROUS\MAGNESIUM CARBONATE
     Indication: Anticoagulant therapy
     Dosage: IN THE MORNING.
     Route: 048
     Dates: start: 202409
  7. DAPAGLIFLOZIN [Concomitant]
     Active Substance: DAPAGLIFLOZIN
     Indication: Cardiac disorder
     Dosage: ONE TABLET IN THE MORNING AND ONE IN THE AFTERNOON.
     Route: 048
     Dates: start: 202409
  8. Succinato de metoprolol [Concomitant]
     Indication: Product used for unknown indication
     Dosage: ONE TABLET IN THE MORNING AND ONE IN THE EVENING
     Route: 048
     Dates: start: 202409
  9. SUCCINATO DE DESVENLAFAXINA [Concomitant]
     Indication: Depression
     Dosage: SHE USES TWO PRESENTATIONS OF THIS MEDICATION, ONE PRESENTATION OF 50MG AND ONE OF 100MG, SHE USES O
     Route: 048
  10. SUCCINATO DE DESVENLAFAXINA [Concomitant]
     Indication: Anxiety

REACTIONS (17)
  - Chronic obstructive pulmonary disease [Unknown]
  - Pneumonia [Unknown]
  - Myocardial infarction [Unknown]
  - Vascular occlusion [Unknown]
  - Pneumonia [Recovered/Resolved]
  - Dengue fever [Recovered/Resolved]
  - Urinary tract infection [Unknown]
  - Dyspnoea [Unknown]
  - Dysuria [Unknown]
  - Headache [Unknown]
  - Blood glucose abnormal [Unknown]
  - Catheterisation cardiac [Unknown]
  - Blood pressure decreased [Unknown]
  - Musculoskeletal chest pain [Unknown]
  - Intentional product use issue [Not Recovered/Not Resolved]
  - Headache [Unknown]
  - Insomnia [Unknown]

NARRATIVE: CASE EVENT DATE: 20231001
